FAERS Safety Report 7391393-4 (Version None)
Quarter: 2011Q1

REPORT INFORMATION
  Report Type: 
  Country: None (occurrence: None)
  Receive Date: 20110324
  Receipt Date: 20110310
  Transmission Date: 20110831
  Serious: Yes (Other)
  Sender: FDA-Public Use
  Company Number: 1000019323

PATIENT
  Age: 94 Year
  Sex: Female

DRUGS (13)
  1. TORASEMID (TORASEMIDE) (TABLETS) [Suspect]
     Dosage: 10 MG (10 MG,1 IN 1 D) ; 25 MG (25 MG,1 IN 1 D)
     Dates: end: 20101220
  2. TORASEMID (TORASEMIDE) (TABLETS) [Suspect]
     Dosage: 10 MG (10 MG,1 IN 1 D) ; 25 MG (25 MG,1 IN 1 D)
     Dates: start: 20101221
  3. DAFALGAN (PARACETAMOL) (TABLETS) (PARACETAMOL) [Concomitant]
  4. FUROSEMIDE (FUROSEMIDE) (TABLETS) (FUROSEMIDE) [Concomitant]
  5. MEMANTINE [Suspect]
     Dosage: 20 MG (20 MG,2 IN 1 D),ORAL
     Route: 048
     Dates: end: 20101226
  6. CALCIPARINE [Concomitant]
  7. EUTHYROX N (LEVOTHYROXINE SODIUM) (TABLETS) (LEVOTHYROXINE SODIUM) [Concomitant]
  8. MEMANTINE [Suspect]
     Dosage: 10 MG (10 MG,1 IN 1 D),ORAL ; 5 MG (5 MG,1 IN 1 D),ORAL
     Dates: start: 20101227, end: 20110125
  9. MEMANTINE [Suspect]
     Dosage: 10 MG (10 MG,1 IN 1 D),ORAL ; 5 MG (5 MG,1 IN 1 D),ORAL
     Dates: start: 20110126, end: 20110202
  10. LASIX [Concomitant]
  11. ASPIRIN CARDIO (ACTYLSALICYLIC ACID) (TABLETS) (ACETYLSALICYLIC ACID) [Concomitant]
  12. CEFUROXIME [Suspect]
     Dosage: 3000 MG (1500 MG,2 IN 1 D),INTRAVENOUS (NOT OTHERWISE SPECIFIED)
     Route: 042
     Dates: start: 20101210, end: 20101213
  13. TEMGESIC (BUPRENORPHINE) (TABLETS) (BUPRENORPHINE) [Concomitant]

REACTIONS (6)
  - DRUG PRESCRIBING ERROR [None]
  - EOSINOPHILIA [None]
  - RENAL FAILURE ACUTE [None]
  - RASH ERYTHEMATOUS [None]
  - PRURITUS [None]
  - DERMATITIS ALLERGIC [None]
